FAERS Safety Report 8802583 (Version 2)
Quarter: 2015Q2

REPORT INFORMATION
  Report Type: Report from Study
  Country: US (occurrence: US)
  Receive Date: 20120921
  Receipt Date: 20150617
  Transmission Date: 20150821
  Serious: Yes (Death)
  Sender: FDA-Public Use
  Company Number: US-ROCHE-1123475

PATIENT
  Sex: Male
  Weight: 60 kg

DRUGS (4)
  1. CALCIUM CHLORIDE. [Concomitant]
     Active Substance: CALCIUM CHLORIDE
     Dosage: }60/4MG
     Route: 065
  2. AVASTIN [Suspect]
     Active Substance: BEVACIZUMAB
     Indication: RENAL CANCER
     Route: 042
  3. AVASTIN [Suspect]
     Active Substance: BEVACIZUMAB
     Route: 042
  4. ZOMETA [Concomitant]
     Active Substance: ZOLEDRONIC ACID
     Dosage: 100-1130
     Route: 065

REACTIONS (2)
  - Death [Fatal]
  - Off label use [Unknown]
